FAERS Safety Report 6542419-9 (Version None)
Quarter: 2010Q1

REPORT INFORMATION
  Report Type: 
  Country: None (occurrence: None)
  Receive Date: 20100119
  Receipt Date: 20100111
  Transmission Date: 20100710
  Serious: Yes (Other)
  Sender: FDA-Public Use
  Company Number: US-ASTRAZENECA-2010SE01135

PATIENT
  Sex: Male
  Weight: 102.1 kg

DRUGS (2)
  1. SEROQUEL [Suspect]
     Route: 048
  2. CLONIPINE [Concomitant]

REACTIONS (6)
  - CONVULSION [None]
  - DRUG INEFFECTIVE [None]
  - FALL [None]
  - HERPES ZOSTER [None]
  - MANIA [None]
  - TREMOR [None]
